FAERS Safety Report 16322383 (Version 1)
Quarter: 2019Q2

REPORT INFORMATION
  Report Type: Spontaneous
  Country: US (occurrence: US)
  Receive Date: 20190516
  Receipt Date: 20190516
  Transmission Date: 20190711
  Serious: Yes (Hospitalization)
  Sender: FDA-Public Use
  Company Number: US-ALNYLAM PHARMACEUTICALS, INC.-ALN-2019-000337

PATIENT
  Sex: Male

DRUGS (1)
  1. ONPATTRO [Suspect]
     Active Substance: PATISIRAN SODIUM
     Indication: HEREDITARY NEUROPATHIC AMYLOIDOSIS
     Route: 042

REACTIONS (8)
  - Fatigue [Unknown]
  - Walking disability [Unknown]
  - Weight decreased [Unknown]
  - Muscle spasms [Unknown]
  - Malaise [Unknown]
  - Headache [Unknown]
  - Nasal congestion [Unknown]
  - Nocturnal dyspnoea [Unknown]
